FAERS Safety Report 22005922 (Version 1)
Quarter: 2023Q1

REPORT INFORMATION
  Report Type: Spontaneous
  Country: US (occurrence: None)
  Receive Date: 20230216
  Receipt Date: 20230216
  Transmission Date: 20230418
  Serious: No
  Sender: FDA-Public Use
  Company Number: None

PATIENT
  Age: 59 Year
  Sex: Female

DRUGS (2)
  1. NP THYROID [Suspect]
     Active Substance: LEVOTHYROXINE\LIOTHYRONINE
     Indication: Fatigue
     Dosage: FREQUENCY : DAILY;?
     Route: 048
     Dates: start: 20230212, end: 20230216
  2. thyroid np 15 mg [Concomitant]
     Dates: start: 20230212, end: 20230216

REACTIONS (1)
  - Palpitations [None]
